FAERS Safety Report 6607017-7 (Version None)
Quarter: 2010Q1

REPORT INFORMATION
  Report Type: 
  Country: None (occurrence: None)
  Receive Date: 20100226
  Receipt Date: 20100218
  Transmission Date: 20100710
  Serious: Yes (Hospitalization, Other)
  Sender: FDA-Public Use
  Company Number: US-AMGEN-QUU393821

PATIENT
  Sex: Female

DRUGS (2)
  1. ENBREL [Suspect]
     Indication: RHEUMATOID ARTHRITIS
     Route: 058
     Dates: start: 20031201
  2. UNSPECIFIED MEDICATION [Concomitant]

REACTIONS (3)
  - CELLULITIS [None]
  - GASTRIC ULCER [None]
  - STAPHYLOCOCCAL INFECTION [None]
